FAERS Safety Report 10029229 (Version 1)
Quarter: 2014Q1

REPORT INFORMATION
  Report Type: Report from Study
  Country: IN (occurrence: IN)
  Receive Date: 20140321
  Receipt Date: 20140321
  Transmission Date: 20141002
  Serious: Yes (Death)
  Sender: FDA-Public Use
  Company Number: PHHY2014IN031815

PATIENT
  Age: 61 Year
  Sex: Female
  Weight: 65 kg

DRUGS (1)
  1. ASUNRA [Suspect]
     Indication: IRON OVERLOAD
     Dosage: 400 MG, QD
     Route: 048

REACTIONS (1)
  - Aspiration [Fatal]
